FAERS Safety Report 23500165 (Version 3)
Quarter: 2024Q1

REPORT INFORMATION
  Report Type: Spontaneous
  Country: FR (occurrence: FR)
  Receive Date: 20240208
  Receipt Date: 20240314
  Transmission Date: 20240410
  Serious: Yes (Hospitalization, Other)
  Sender: FDA-Public Use
  Company Number: FR-SANOFI-01926330

PATIENT
  Age: 68 Year
  Sex: Female

DRUGS (3)
  1. GLYBURIDE [Suspect]
     Active Substance: GLYBURIDE
     Indication: Diabetes mellitus
     Dosage: 1 DF, BID
     Dates: start: 2009
  2. GLYBURIDE [Suspect]
     Active Substance: GLYBURIDE
     Dosage: 0.5 DF, BID
     Dates: start: 2009, end: 20240126
  3. GLICLAZIDE [Suspect]
     Active Substance: GLICLAZIDE
     Indication: Diabetes mellitus
     Dosage: UNK

REACTIONS (12)
  - Hemiplegia [Unknown]
  - Altered state of consciousness [Unknown]
  - Seizure [Unknown]
  - Mobility decreased [Recovered/Resolved]
  - Vertigo [Recovered/Resolved]
  - Cognitive disorder [Unknown]
  - Weight decreased [Unknown]
  - Decreased appetite [Recovering/Resolving]
  - Muscle atrophy [Unknown]
  - Aphasia [Unknown]
  - Memory impairment [Recovered/Resolved]
  - Muscular weakness [Recovered/Resolved]

NARRATIVE: CASE EVENT DATE: 20231205
